FAERS Safety Report 10667637 (Version 1)
Quarter: 2014Q4

REPORT INFORMATION
  Report Type: Spontaneous
  Country: GB (occurrence: None)
  Receive Date: 20141218
  Receipt Date: 20141218
  Transmission Date: 20150529
  Serious: Yes (Disabling)
  Sender: FDA-Public Use
  Company Number: 2668887

PATIENT
  Age: 59 Year
  Sex: Female
  Weight: 85.5 kg

DRUGS (1)
  1. METHOTREXATE [Suspect]
     Active Substance: METHOTREXATE
     Indication: PRODUCT USED FOR UNKNOWN INDICATION
     Dates: start: 20140724

REACTIONS (4)
  - Dyspnoea [None]
  - Hypersensitivity [None]
  - Chest discomfort [None]
  - Rash [None]

NARRATIVE: CASE EVENT DATE: 20140905
